FAERS Safety Report 9443648 (Version 2)
Quarter: 2013Q3

REPORT INFORMATION
  Report Type: Spontaneous
  Country: DE (occurrence: DE)
  Receive Date: 20130806
  Receipt Date: 20130924
  Transmission Date: 20140515
  Serious: Yes (Death, Hospitalization)
  Sender: FDA-Public Use
  Company Number: DE-UCBSA-093550

PATIENT
  Age: 77 Year
  Sex: Male

DRUGS (8)
  1. VIMPAT [Suspect]
  2. VIMPAT [Suspect]
     Dosage: UNKNOWN DOSE
  3. KEPPRA [Suspect]
  4. KEPPRA [Suspect]
  5. KEPPRA [Suspect]
  6. KEPPRA [Suspect]
  7. TOPAMAX [Concomitant]
  8. TAVOR [Concomitant]

REACTIONS (8)
  - Death [Fatal]
  - Dementia [Unknown]
  - Cognitive disorder [Unknown]
  - Convulsion [Unknown]
  - Pneumonia [Unknown]
  - Attention deficit/hyperactivity disorder [Unknown]
  - Sleep disorder [Unknown]
  - Somnolence [Unknown]
